FAERS Safety Report 20562699 (Version 1)
Quarter: 2022Q1

REPORT INFORMATION
  Report Type: Report from Study
  Country: CN (occurrence: CN)
  Receive Date: 20220307
  Receipt Date: 20220307
  Transmission Date: 20220423
  Serious: Yes (Hospitalization)
  Sender: FDA-Public Use
  Company Number: CN-IMMUNOMEDICS, INC.-2021IMMU000224

PATIENT
  Age: 51 Year
  Sex: Female
  Weight: 86 kg

DRUGS (4)
  1. SACITUZUMAB GOVITECAN [Suspect]
     Active Substance: SACITUZUMAB GOVITECAN
     Indication: Breast cancer metastatic
     Dosage: 10 MG/KG; DAYS 1 AND 8 OF 21 DAY CYCLE; 860 MG ONCE
     Route: 042
     Dates: start: 20210505
  2. SACITUZUMAB GOVITECAN [Suspect]
     Active Substance: SACITUZUMAB GOVITECAN
     Dosage: 10 MG/KG; DAYS 1 AND 8 OF 21 DAY CYCLE; 860 MG ONCE
     Route: 042
     Dates: start: 20210422, end: 20210430
  3. OXYCODONE HYDROCHLORIDE [Concomitant]
     Active Substance: OXYCODONE HYDROCHLORIDE
     Indication: Analgesic therapy
     Dosage: 150 MG
     Route: 065
     Dates: start: 20210423
  4. LEVOTHYROXINE SODIUM [Concomitant]
     Active Substance: LEVOTHYROXINE SODIUM
     Indication: Hypothyroidism
     Dosage: 75 UG
     Route: 065
     Dates: start: 2019

REACTIONS (2)
  - White blood cell count decreased [Recovered/Resolved]
  - Neutrophil count decreased [Recovered/Resolved]

NARRATIVE: CASE EVENT DATE: 20210430
